FAERS Safety Report 5432710-1 (Version None)
Quarter: 2007Q3

REPORT INFORMATION
  Report Type: 
  Country: None (occurrence: None)
  Receive Date: 20070831
  Receipt Date: 20070705
  Transmission Date: 20080115
  Serious: No
  Sender: FDA-Public Use
  Company Number: A0661700A

PATIENT
  Age: 59 Year
  Sex: Female

DRUGS (3)
  1. ALLI [Suspect]
     Dates: start: 20070626
  2. LISINOPRIL [Concomitant]
     Indication: HYPERTENSION
  3. WELLBUTRIN [Concomitant]
     Indication: DEPRESSION

REACTIONS (1)
  - DIZZINESS [None]
